FAERS Safety Report 4801939-5 (Version None)
Quarter: 2005Q4

REPORT INFORMATION
  Report Type: 
  Country: None (occurrence: None)
  Receive Date: 20051014
  Receipt Date: 20051014
  Transmission Date: 20060501
  Serious: Yes (Life-Threatening, Hospitalization)
  Sender: FDA-Public Use
  Company Number: None

PATIENT
  Age: 48 Year
  Sex: Female
  Weight: 93.441 kg

DRUGS (3)
  1. YASMIN [Suspect]
     Indication: DYSFUNCTIONAL UTERINE BLEEDING
     Dosage: 1 PO DAILY
     Route: 048
     Dates: start: 20050620, end: 20050813
  2. ATENOLOL [Concomitant]
  3. EFFEXOR XR [Concomitant]

REACTIONS (1)
  - PULMONARY EMBOLISM [None]
